FAERS Safety Report 8176898-0 (Version None)
Quarter: 2012Q1

REPORT INFORMATION
  Report Type: 
  Country: None (occurrence: None)
  Receive Date: 20120301
  Receipt Date: 20120220
  Transmission Date: 20120608
  Serious: Yes (Hospitalization, Other)
  Sender: FDA-Public Use
  Company Number: SE-PFIZER INC-2011242344

PATIENT
  Age: 49 Year
  Sex: Female

DRUGS (8)
  1. CORDARONE [Suspect]
     Indication: ATRIAL FIBRILLATION
     Dosage: 200 MG, SINGLE
     Route: 065
     Dates: start: 20110926, end: 20110926
  2. ASPIRIN [Concomitant]
  3. DRONEDARONE HCL [Suspect]
     Indication: ATRIAL FIBRILLATION
     Dosage: 400 MG, 2X/DAY
     Route: 048
     Dates: start: 20110101, end: 20110301
  4. METOPROLOL TARTRATE [Concomitant]
  5. LIPITOR [Concomitant]
  6. DRONEDARONE HCL [Suspect]
     Dosage: 400 MG, 2X/DAY
     Route: 048
     Dates: start: 20110501, end: 20110923
  7. RAMIPRIL [Concomitant]
  8. FUROSEMIDE [Concomitant]

REACTIONS (3)
  - TORSADE DE POINTES [None]
  - VENTRICULAR FIBRILLATION [None]
  - CARDIAC ARREST [None]
